FAERS Safety Report 23245853 (Version 1)
Quarter: 2023Q4

REPORT INFORMATION
  Report Type: Spontaneous
  Country: PL (occurrence: PL)
  Receive Date: 20231130
  Receipt Date: 20231130
  Transmission Date: 20240110
  Serious: Yes (Death, Other)
  Sender: FDA-Public Use
  Company Number: PL-ASTELLAS-2023US035246

PATIENT
  Age: 62 Year
  Sex: Female

DRUGS (2)
  1. GILTERITINIB [Suspect]
     Active Substance: GILTERITINIB
     Indication: Acute myeloid leukaemia
     Dosage: UNK UNK, UNKNOWN FREQ.
     Route: 065
     Dates: start: 20230202
  2. GILTERITINIB [Suspect]
     Active Substance: GILTERITINIB
     Indication: FLT3 gene mutation
     Dosage: 200 MG, ONCE DAILY (DOSE INCREASED TO 200 MG/DAY ACCORDING TO SPC)
     Route: 065
     Dates: end: 202305

REACTIONS (5)
  - Death [Fatal]
  - Minimal residual disease [Unknown]
  - Pneumonia [Unknown]
  - Sepsis [Unknown]
  - Encephalitis [Unknown]

NARRATIVE: CASE EVENT DATE: 20230508
